FAERS Safety Report 6245824-3 (Version None)
Quarter: 2009Q2

REPORT INFORMATION
  Report Type: 
  Country: None (occurrence: None)
  Receive Date: 20090624
  Receipt Date: 20090611
  Transmission Date: 20091009
  Serious: Yes (Other)
  Sender: FDA-Public Use
  Company Number: 231206K08USA

PATIENT
  Age: 61 Year
  Sex: Female
  Weight: 69 kg

DRUGS (2)
  1. REBIF [Suspect]
     Indication: MULTIPLE SCLEROSIS
     Dosage: NOT REPORTED, NOT REPORTED, NOT REPORTED
     Dates: start: 20070601, end: 20080801
  2. AMANTADINE HCL [Concomitant]

REACTIONS (6)
  - ABDOMINAL PAIN [None]
  - BILE DUCT OBSTRUCTION [None]
  - DIARRHOEA [None]
  - NAUSEA [None]
  - OESOPHAGEAL STENOSIS [None]
  - VOMITING [None]
